FAERS Safety Report 7350737-X (Version None)
Quarter: 2011Q1

REPORT INFORMATION
  Report Type: 
  Country: None (occurrence: None)
  Receive Date: 20110314
  Receipt Date: 20110310
  Transmission Date: 20110831
  Serious: Yes (Other)
  Sender: FDA-Public Use
  Company Number: US-PFIZER INC-2011053713

PATIENT
  Sex: Female
  Weight: 65.76 kg

DRUGS (1)
  1. IBUPROFEN (ADVIL) [Suspect]
     Dosage: UNK, DAILY
     Route: 048
     Dates: start: 20110307, end: 20110307

REACTIONS (2)
  - HYPERSENSITIVITY [None]
  - LUNG DISORDER [None]
